FAERS Safety Report 9425144 (Version 3)
Quarter: 2013Q4

REPORT INFORMATION
  Report Type: Spontaneous
  Country: US (occurrence: US)
  Receive Date: 20130729
  Receipt Date: 20131113
  Transmission Date: 20140711
  Serious: Yes (Other)
  Sender: FDA-Public Use
  Company Number: US-PFIZER INC-2013217580

PATIENT
  Age: 66 Year
  Sex: Male

DRUGS (8)
  1. SUTENT [Suspect]
     Indication: NEOPLASM MALIGNANT
     Dosage: 50 MG, DAILY (CYCLIC)(HE HAD IN MIDDLE OF HIS BREAK FOR HIS SECOND CYCLE)
     Dates: start: 20130508
  2. SUTENT [Suspect]
     Dosage: 25 MG, CYCLIC
     Dates: start: 20130804
  3. SORAFENIB [Suspect]
     Dosage: UNK
  4. LEVOTHYROXINE [Concomitant]
     Dosage: UNK
  5. MAGIC MOUTHWASH [Concomitant]
     Dosage: UNK
  6. LOMOTIL [Concomitant]
     Dosage: UNK
  7. TYLENOL [Concomitant]
     Dosage: UNK, AS NEEDED (PRN)
  8. CRESTOR [Concomitant]
     Dosage: UNK

REACTIONS (17)
  - Spinal cord compression [Recovered/Resolved]
  - Road traffic accident [Recovered/Resolved]
  - Stomatitis [Recovered/Resolved]
  - Blister [Recovered/Resolved]
  - Palmar-plantar erythrodysaesthesia syndrome [Recovered/Resolved]
  - Balance disorder [Recovered/Resolved]
  - Muscular weakness [Recovered/Resolved]
  - Pain [Recovered/Resolved]
  - Diarrhoea [Unknown]
  - Temperature intolerance [Unknown]
  - Liver function test abnormal [Unknown]
  - Local swelling [Unknown]
  - Dysgeusia [Unknown]
  - Abdominal distension [Unknown]
  - Eructation [Unknown]
  - Disease progression [Unknown]
  - Neoplasm malignant [Unknown]
